FAERS Safety Report 6704111-7 (Version None)
Quarter: 2010Q2

REPORT INFORMATION
  Report Type: 
  Country: None (occurrence: None)
  Receive Date: 20100430
  Receipt Date: 20100419
  Transmission Date: 20101027
  Serious: No
  Sender: FDA-Public Use
  Company Number: US-JNJFOC-20100405521

PATIENT
  Sex: Female
  Weight: 63.5 kg

DRUGS (4)
  1. DURAGESIC-100 [Suspect]
     Indication: HERPES ZOSTER
     Route: 062
     Dates: start: 20010101, end: 20090101
  2. DURAGESIC-100 [Suspect]
     Indication: HERPES ZOSTER
     Dosage: NDC# 50458-092
     Route: 062
     Dates: start: 20090101
  3. NEURONTIN [Concomitant]
     Indication: PAIN
     Dosage: IN DIVIDED DOSES
     Route: 048
  4. GABITRIL [Concomitant]
     Indication: PAIN
     Route: 048

REACTIONS (5)
  - APPLICATION SITE EROSION [None]
  - DRUG DOSE OMISSION [None]
  - INADEQUATE ANALGESIA [None]
  - PRODUCT ADHESION ISSUE [None]
  - WRONG TECHNIQUE IN DRUG USAGE PROCESS [None]
